FAERS Safety Report 8266402-0 (Version None)
Quarter: 2012Q2

REPORT INFORMATION
  Report Type: 
  Country: None (occurrence: None)
  Receive Date: 20120406
  Receipt Date: 20120328
  Transmission Date: 20120825
  Serious: Yes (Hospitalization)
  Sender: FDA-Public Use
  Company Number: US-ASTRAZENECA-2010SE40012

PATIENT
  Age: 66 Year
  Sex: Female

DRUGS (4)
  1. COREG [Concomitant]
  2. ATACAND [Suspect]
     Route: 048
  3. ATACAND [Suspect]
     Route: 048
  4. NEXIUM [Suspect]
     Route: 048

REACTIONS (3)
  - VIRAL INFECTION [None]
  - GAIT DISTURBANCE [None]
  - BALANCE DISORDER [None]
